FAERS Safety Report 6473113-0 (Version None)
Quarter: 2009Q4

REPORT INFORMATION
  Report Type: 
  Country: None (occurrence: None)
  Receive Date: 20091204
  Receipt Date: 20081022
  Transmission Date: 20100525
  Serious: Yes (Hospitalization, Other)
  Sender: FDA-Public Use
  Company Number: AT-ELI_LILLY_AND_COMPANY-AT200808001608

PATIENT
  Age: 48 Year
  Sex: Male
  Weight: 92.4 kg

DRUGS (2)
  1. ZYPREXA [Suspect]
     Indication: AGITATION
     Dosage: 5 MG, 2/D
     Dates: end: 20080101
  2. ZYPREXA [Suspect]
     Dosage: 5 MG, DAILY (1/D)
     Dates: start: 20080101, end: 20080805

REACTIONS (2)
  - DEPRESSION [None]
  - HEPATIC ENZYME INCREASED [None]
